FAERS Safety Report 10583726 (Version 1)
Quarter: 2014Q4

REPORT INFORMATION
  Report Type: Report from Study
  Country: US (occurrence: None)
  Receive Date: 20141112
  Receipt Date: 20141112
  Transmission Date: 20150529
  Serious: Yes (Hospitalization)
  Sender: FDA-Public Use
  Company Number: 201410IM007336

PATIENT
  Age: 80 Year
  Sex: Male
  Weight: 71.7 kg

DRUGS (1)
  1. PIRFENIDONE [Suspect]
     Active Substance: PIRFENIDONE
     Indication: IDIOPATHIC PULMONARY FIBROSIS
     Route: 048
     Dates: start: 20140617, end: 201410

REACTIONS (2)
  - Bladder disorder [None]
  - Diarrhoea [None]

NARRATIVE: CASE EVENT DATE: 20141022
